FAERS Safety Report 11880124 (Version 1)
Quarter: 2015Q4

REPORT INFORMATION
  Report Type: Spontaneous
  Country: US (occurrence: None)
  Receive Date: 20151209
  Receipt Date: 20151209
  Transmission Date: 20160305
  Serious: Yes (Other)
  Sender: FDA-Public Use
  Company Number: 2015RIS00160

PATIENT
  Sex: Female

DRUGS (1)
  1. CARISOPRODOL 350 MG TABLET [Suspect]
     Active Substance: CARISOPRODOL
     Indication: MYALGIA
     Route: 048

REACTIONS (3)
  - Headache [None]
  - Nausea [None]
  - Drug ineffective [None]

NARRATIVE: CASE EVENT DATE: 20151117
